FAERS Safety Report 8242764-5 (Version None)
Quarter: 2012Q1

REPORT INFORMATION
  Report Type: 
  Country: None (occurrence: None)
  Receive Date: 20120329
  Receipt Date: 20120323
  Transmission Date: 20120608
  Serious: Yes (Other)
  Sender: FDA-Public Use
  Company Number: JP-SANOFI-AVENTIS-2012SA021168

PATIENT
  Age: 63 Year
  Sex: Female

DRUGS (1)
  1. LASIX [Suspect]
     Dosage: STRENGTH: 20 MG
     Route: 065
     Dates: start: 20100601, end: 20100701

REACTIONS (3)
  - HYPOXIC-ISCHAEMIC ENCEPHALOPATHY [None]
  - TORSADE DE POINTES [None]
  - VENTRICULAR FIBRILLATION [None]
